FAERS Safety Report 19135015 (Version 1)
Quarter: 2021Q2

REPORT INFORMATION
  Report Type: Spontaneous
  Country: US (occurrence: US)
  Receive Date: 20210414
  Receipt Date: 20210414
  Transmission Date: 20210717
  Serious: Yes (Hospitalization, Other)
  Sender: FDA-Public Use
  Company Number: US-AMRING PHARMACEUTICALS INC.-2021US002898

PATIENT
  Age: 67 Year
  Sex: Male

DRUGS (2)
  1. ARSENIC TRIOXIDE INJECTION [Suspect]
     Active Substance: ARSENIC TRIOXIDE
     Indication: ACUTE PROMYELOCYTIC LEUKAEMIA
     Dosage: UNK
     Route: 065
  2. RETINOIC ACID [Concomitant]
     Active Substance: TRETINOIN
     Indication: ACUTE PROMYELOCYTIC LEUKAEMIA
     Dosage: UNK
     Route: 065

REACTIONS (2)
  - Herpes zoster meningoencephalitis [Recovered/Resolved with Sequelae]
  - Herpes zoster [Unknown]
